FAERS Safety Report 10412518 (Version 2)
Quarter: 2014Q3

REPORT INFORMATION
  Report Type: Other
  Country: CA (occurrence: CA)
  Receive Date: 20140827
  Receipt Date: 20140904
  Transmission Date: 20150326
  Serious: Yes (Other)
  Sender: FDA-Public Use
  Company Number: CA-ASTELLAS-2014US010660

PATIENT
  Age: 65 Year
  Sex: Male

DRUGS (3)
  1. ADVAGRAF [Suspect]
     Active Substance: TACROLIMUS
     Indication: PRODUCT USED FOR UNKNOWN INDICATION
     Dosage: 5.0 MG, ONCE DAILY
     Route: 048
  2. PREDNISONE. [Suspect]
     Active Substance: PREDNISONE
     Indication: PRODUCT USED FOR UNKNOWN INDICATION
     Dosage: 10.0 MG, ONCE DAILY
     Route: 048
  3. CELLCEPT [Suspect]
     Active Substance: MYCOPHENOLATE MOFETIL\MYCOPHENOLATE MOFETIL HYDROCHLORIDE
     Indication: PRODUCT USED FOR UNKNOWN INDICATION
     Dosage: 500.0 MG, TWICE DAILY
     Route: 048

REACTIONS (7)
  - Cellulitis [Not Recovered/Not Resolved]
  - Laceration [Not Recovered/Not Resolved]
  - Nail atrophy [Not Recovered/Not Resolved]
  - Skin atrophy [Not Recovered/Not Resolved]
  - Skin necrosis [Not Recovered/Not Resolved]
  - Sensory loss [Not Recovered/Not Resolved]
  - Skin ulcer [Not Recovered/Not Resolved]
